FAERS Safety Report 8433314-9 (Version None)
Quarter: 2012Q2

REPORT INFORMATION
  Report Type: 
  Country: None (occurrence: None)
  Receive Date: 20120613
  Receipt Date: 20120604
  Transmission Date: 20120825
  Serious: Yes (Hospitalization, Other)
  Sender: FDA-Public Use
  Company Number: DE-JNJFOC-20120605859

PATIENT
  Sex: Female
  Weight: 75 kg

DRUGS (9)
  1. ALLOPURINOL [Concomitant]
  2. XARELTO [Suspect]
     Indication: CEREBROVASCULAR ACCIDENT PROPHYLAXIS
     Route: 048
     Dates: start: 20120129, end: 20120129
  3. XARELTO [Suspect]
     Route: 048
     Dates: start: 20120316, end: 20120316
  4. XARELTO [Suspect]
     Indication: ATRIAL FIBRILLATION
     Route: 048
     Dates: start: 20120129, end: 20120129
  5. XARELTO [Suspect]
     Route: 048
     Dates: start: 20120316, end: 20120316
  6. METFORMIN HCL [Concomitant]
  7. CONCOR [Concomitant]
  8. CITALOPRAM [Concomitant]
  9. PANTOPRAZOLE [Concomitant]

REACTIONS (2)
  - CEREBROVASCULAR ACCIDENT [None]
  - BLOOD PRESSURE DECREASED [None]
